FAERS Safety Report 18158064 (Version 1)
Quarter: 2020Q3

REPORT INFORMATION
  Report Type: Spontaneous
  Country: US (occurrence: US)
  Receive Date: 20200817
  Receipt Date: 20200817
  Transmission Date: 20201103
  Serious: No
  Sender: FDA-Public Use
  Company Number: US-MEDEXUS PHARMA, INC.-2020MED00161

PATIENT
  Age: 78 Year
  Sex: Female
  Weight: 85.26 kg

DRUGS (12)
  1. HUMIRA [Concomitant]
     Active Substance: ADALIMUMAB
  2. BACLOFEN. [Concomitant]
     Active Substance: BACLOFEN
  3. LEVOTHYROXINE. [Concomitant]
     Active Substance: LEVOTHYROXINE
  4. PREDNISONE. [Concomitant]
     Active Substance: PREDNISONE
  5. POTASSIUM [Concomitant]
     Active Substance: POTASSIUM
     Dosage: UNK, 3X/WEEK
  6. PROLIA [Concomitant]
     Active Substance: DENOSUMAB
  7. RASUVO [Suspect]
     Active Substance: METHOTREXATE SODIUM
     Indication: RHEUMATOID ARTHRITIS
     Dosage: 20 MG, INJECTED INTO STOMACH BY HER NAVEL OR THIGH, 1X/WEEK ON THURSDAYS
     Dates: start: 2018
  8. VOLTAREN [Concomitant]
     Active Substance: DICLOFENAC SODIUM
  9. METOPROLOL. [Concomitant]
     Active Substance: METOPROLOL
  10. FUROSEMIDE. [Concomitant]
     Active Substance: FUROSEMIDE
  11. FOLIC ACID. [Concomitant]
     Active Substance: FOLIC ACID
  12. MULTIGEN [Concomitant]

REACTIONS (5)
  - Discomfort [Not Recovered/Not Resolved]
  - Device failure [Not Recovered/Not Resolved]
  - Injection site bruising [Unknown]
  - Product dose omission issue [Not Recovered/Not Resolved]
  - Injection site pain [Not Recovered/Not Resolved]

NARRATIVE: CASE EVENT DATE: 2019
